FAERS Safety Report 8100612-8 (Version None)
Quarter: 2012Q1

REPORT INFORMATION
  Report Type: 
  Country: None (occurrence: None)
  Receive Date: 20120131
  Receipt Date: 20120123
  Transmission Date: 20120608
  Serious: Yes (Other)
  Sender: FDA-Public Use
  Company Number: GB-ABBOTT-12P-167-0896829-00

PATIENT
  Sex: Female

DRUGS (1)
  1. HUMIRA [Suspect]
     Indication: RHEUMATOID ARTHRITIS
     Dosage: 1 IN 2 WEEKS, EVERY2/52
     Route: 058
     Dates: start: 20110501

REACTIONS (5)
  - GINGIVITIS [None]
  - ORAL CAVITY FISTULA [None]
  - ORAL PAIN [None]
  - DRY MOUTH [None]
  - STOMATITIS [None]
